FAERS Safety Report 6056516-8 (Version None)
Quarter: 2009Q1

REPORT INFORMATION
  Report Type: 
  Country: None (occurrence: None)
  Receive Date: 20090129
  Receipt Date: 20080422
  Transmission Date: 20090719
  Serious: No
  Sender: FDA-Public Use
  Company Number: A0725193A

PATIENT
  Age: 29 Year
  Sex: Male
  Weight: 72.3 kg

DRUGS (2)
  1. COMBIVIR [Suspect]
     Indication: ACQUIRED IMMUNODEFICIENCY SYNDROME
     Dosage: 2TAB PER DAY
     Route: 048
     Dates: start: 20070228, end: 20070322
  2. KALETRA [Suspect]
     Indication: ACQUIRED IMMUNODEFICIENCY SYNDROME
     Dosage: 2TAB PER DAY
     Route: 048
     Dates: start: 20080228, end: 20080322

REACTIONS (14)
  - AMNESIA [None]
  - BLISTER [None]
  - CONFUSIONAL STATE [None]
  - DIARRHOEA [None]
  - DRY SKIN [None]
  - HEADACHE [None]
  - HOT FLUSH [None]
  - RASH GENERALISED [None]
  - SKIN IRRITATION [None]
  - SKIN LESION [None]
  - TACHYPHRENIA [None]
  - THINKING ABNORMAL [None]
  - VISION BLURRED [None]
  - VOMITING [None]
